FAERS Safety Report 11370519 (Version 1)
Quarter: 2015Q3

REPORT INFORMATION
  Report Type: Spontaneous
  Country: CN (occurrence: CN)
  Receive Date: 20150812
  Receipt Date: 20150812
  Transmission Date: 20151125
  Serious: Yes (Hospitalization, Other)
  Sender: FDA-Public Use
  Company Number: CN-GILEAD-2015-0167230

PATIENT
  Age: 58 Year
  Sex: Female

DRUGS (1)
  1. HEPSERA [Suspect]
     Active Substance: ADEFOVIR DIPIVOXIL
     Indication: HEPATITIS B
     Dosage: 10 MG, QD
     Route: 065

REACTIONS (14)
  - Osteoporosis [Unknown]
  - Acidosis [Recovered/Resolved]
  - Fanconi syndrome acquired [Recovered/Resolved]
  - Back pain [Recovered/Resolved]
  - Pollakiuria [Recovered/Resolved]
  - Pain in extremity [Recovered/Resolved]
  - Hypophosphataemia [Recovered/Resolved]
  - Urinary retention [Recovered/Resolved]
  - Bone pain [Recovered/Resolved]
  - Hypouricaemia [Recovered/Resolved]
  - Proteinuria [Recovered/Resolved]
  - Arthralgia [Recovered/Resolved]
  - Musculoskeletal chest pain [Recovered/Resolved]
  - Glycosuria [Recovered/Resolved]

NARRATIVE: CASE EVENT DATE: 201011
